FAERS Safety Report 6024028-3 (Version None)
Quarter: 2008Q4

REPORT INFORMATION
  Report Type: 
  Country: None (occurrence: None)
  Receive Date: 20081222
  Receipt Date: 20081006
  Transmission Date: 20090506
  Serious: No
  Sender: FDA-Public Use
  Company Number: SPV1-2008-02019

PATIENT
  Age: 9 Year
  Sex: Male
  Weight: 37.2 kg

DRUGS (4)
  1. VYVANSE [Suspect]
     Indication: ATTENTION DEFICIT/HYPERACTIVITY DISORDER
     Dosage: 20 MG, 1X/DAY:QD, ORAL
     Route: 048
     Dates: start: 20080917, end: 20080918
  2. PROVENTIL/00139501/(SALBUTAMOL) [Concomitant]
  3. SINGULAIR /01362601/ (MONTELUKAST) [Concomitant]
  4. ALLEGRA /01314201/ (FEXOFENADINE) [Concomitant]

REACTIONS (5)
  - CRYING [None]
  - DECREASED APPETITE [None]
  - DEPRESSION [None]
  - EMOTIONAL DISORDER [None]
  - HALLUCINATION [None]
